FAERS Safety Report 6482432-3 (Version None)
Quarter: 2009Q4

REPORT INFORMATION
  Report Type: 
  Country: None (occurrence: None)
  Receive Date: 20091208
  Receipt Date: 20090506
  Transmission Date: 20100525
  Serious: No
  Sender: FDA-Public Use
  Company Number: US-AMGEN-TCS345901

PATIENT
  Sex: Female

DRUGS (3)
  1. ENBREL [Suspect]
     Indication: RHEUMATOID ARTHRITIS
     Route: 058
     Dates: start: 20030201
  2. HYDROXYCHLOROQUINE SULFATE [Concomitant]
     Dates: start: 20040207
  3. METHOTREXATE [Concomitant]
     Dates: start: 20040207

REACTIONS (1)
  - RHEUMATOID ARTHRITIS [None]
